FAERS Safety Report 17268351 (Version 1)
Quarter: 2020Q1

REPORT INFORMATION
  Report Type: Spontaneous
  Country: CN (occurrence: CN)
  Receive Date: 20200114
  Receipt Date: 20200114
  Transmission Date: 20200409
  Serious: Yes (Other)
  Sender: FDA-Public Use
  Company Number: CN-ASTRAZENECA-2020SE01548

PATIENT
  Age: 63 Year
  Sex: Female
  Weight: 40 kg

DRUGS (2)
  1. TAGRISSO [Suspect]
     Active Substance: OSIMERTINIB
     Route: 048
     Dates: start: 201910
  2. IRESSA [Suspect]
     Active Substance: GEFITINIB
     Indication: NON-SMALL CELL LUNG CANCER
     Route: 048
     Dates: end: 201910

REACTIONS (6)
  - Drug resistance [Unknown]
  - Rash [Unknown]
  - Hypersensitivity [Unknown]
  - Pruritus [Unknown]
  - Acquired gene mutation [Unknown]
  - Swelling [Unknown]

NARRATIVE: CASE EVENT DATE: 201910
